FAERS Safety Report 8757049 (Version 1)
Quarter: 2012Q4

REPORT INFORMATION
  Report Type: 
  Country: US (occurrence: US)
  Receive Date: 20120828
  Receipt Date: 20120828
  Transmission Date: 20130627
  Serious: Yes (Other)
  Sender: FDA-Public Use
  Company Number: US-PFIZER INC-2012207966

PATIENT
  Age: 43 Year
  Sex: Female
  Weight: 111 kg

DRUGS (4)
  1. CHANTIX [Suspect]
     Indication: SMOKING CESSATION THERAPY
     Dosage: 0.5 mg, 1x/day
     Route: 048
     Dates: start: 20120817, end: 20120820
  2. ADDERALL [Concomitant]
     Dosage: UNK, 1x/day
  3. CLONAZEPAM [Concomitant]
     Dosage: 0.5 mg, 2x/day
  4. WELLBUTRIN [Concomitant]
     Indication: SMOKING CESSATION THERAPY
     Dosage: 150 mg, 1x/day

REACTIONS (10)
  - Heart rate increased [Unknown]
  - Cardiac flutter [Unknown]
  - Presyncope [Unknown]
  - Tinnitus [Unknown]
  - Laryngitis [Not Recovered/Not Resolved]
  - Speech disorder [Not Recovered/Not Resolved]
  - Dysphonia [Not Recovered/Not Resolved]
  - Dysphagia [Unknown]
  - Dry mouth [Not Recovered/Not Resolved]
  - Dehydration [Not Recovered/Not Resolved]
